FAERS Safety Report 4598114-9 (Version None)
Quarter: 2005Q1

REPORT INFORMATION
  Report Type: 
  Country: None (occurrence: None)
  Receive Date: 20050304
  Receipt Date: 20040922
  Transmission Date: 20050727
  Serious: Yes (Death, Hospitalization)
  Sender: FDA-Public Use
  Company Number: 200413552FR

PATIENT
  Age: 54 Year
  Sex: Male
  Weight: 53 kg

DRUGS (15)
  1. ARAVA [Suspect]
     Indication: RHEUMATOID ARTHRITIS
     Route: 048
     Dates: start: 20031001, end: 20040701
  2. ENDOXAN [Suspect]
  3. CORTANCYL [Concomitant]
     Route: 048
  4. SECTRAL [Concomitant]
     Dosage: DOSE: 200-0-0
     Route: 048
  5. DI-ANTALVIC [Concomitant]
     Dosage: DOSE: 2-2-2; DOSE UNIT: UNITS
     Route: 048
  6. LOVENOX [Concomitant]
     Dosage: DOSE: 0-0-20
     Route: 058
  7. FOSAMAX [Concomitant]
     Route: 048
     Dates: start: 20020401
  8. CACIT D3 [Concomitant]
     Dosage: DOSE: 1-0-0; DOSE UNIT: UNITS
     Route: 048
  9. PROPRANOLOL HYDROCHLORIDE [Concomitant]
     Route: 048
  10. LEXOMIL [Concomitant]
     Dosage: DOSE: 1.5-1.5-3
     Route: 048
  11. OMEPRAZOLE [Concomitant]
     Route: 048
  12. AMLOR [Concomitant]
     Dosage: DOSE: 5-0-0
     Route: 048
  13. NEXIUM [Concomitant]
     Dosage: DOSE: 0-0-20
     Route: 048
  14. VIOXX [Concomitant]
     Dosage: DOSE: 0-0-25
     Route: 048
  15. LAROXYL [Concomitant]
     Dosage: DOSE: 0-0-40
     Route: 048

REACTIONS (7)
  - CARDIAC DISORDER [None]
  - DIFFICULTY IN WALKING [None]
  - GENERAL PHYSICAL HEALTH DETERIORATION [None]
  - MUSCULAR WEAKNESS [None]
  - NEUROMYOPATHY [None]
  - TREMOR [None]
  - WEIGHT DECREASED [None]
